FAERS Safety Report 5823796-0 (Version None)
Quarter: 2008Q3

REPORT INFORMATION
  Report Type: 
  Country: None (occurrence: None)
  Receive Date: 20080725
  Receipt Date: 20080710
  Transmission Date: 20090109
  Serious: Yes (Other)
  Sender: FDA-Public Use
  Company Number: FR-GENENTECH-264828

PATIENT
  Sex: Female

DRUGS (6)
  1. BEVACIZUMAB [Suspect]
     Indication: BREAST CANCER
     Dosage: UNK
     Route: 042
     Dates: start: 20080430, end: 20080610
  2. CYCLOPHOSPHAMIDE [Suspect]
     Indication: BREAST CANCER
     Dosage: UNK
     Route: 042
     Dates: start: 20080430, end: 20080610
  3. EPIRUBICIN [Suspect]
     Indication: BREAST CANCER
     Dosage: UNK
     Dates: start: 20080430, end: 20080610
  4. FLUOROURACIL [Suspect]
     Indication: BREAST CANCER
     Dosage: UNK
     Dates: start: 20080430, end: 20080610
  5. NEULASTA [Suspect]
     Indication: DRUG USE FOR UNKNOWN INDICATION
     Dosage: UNK
     Route: 058
     Dates: start: 20080501
  6. GRANOCYTE [Concomitant]
     Indication: DRUG USE FOR UNKNOWN INDICATION
     Dosage: UNK
     Dates: start: 20080613

REACTIONS (3)
  - GINGIVITIS [None]
  - ORAL FUNGAL INFECTION [None]
  - TRISMUS [None]
